FAERS Safety Report 7456378-8 (Version None)
Quarter: 2011Q2

REPORT INFORMATION
  Report Type: 
  Country: None (occurrence: None)
  Receive Date: 20110503
  Receipt Date: 20110502
  Transmission Date: 20111010
  Serious: Yes (Death, Hospitalization, Other)
  Sender: FDA-Public Use
  Company Number: HR-PFIZER INC-2011093464

PATIENT
  Age: 60 Year
  Sex: Male

DRUGS (6)
  1. NORVASC [Suspect]
     Indication: ESSENTIAL HYPERTENSION
     Dosage: 5 MG, 1X/DAY
     Route: 048
     Dates: start: 20110321
  2. LANITOP [Interacting]
     Indication: ATRIAL FIBRILLATION
     Dosage: 0.1 MG, 1X/DAY
     Route: 048
     Dates: start: 20070820
  3. WARFARIN SODIUM [Interacting]
     Indication: ATRIAL FIBRILLATION
     Dosage: 3 MG, 1X/DAY
     Route: 048
     Dates: start: 20090422
  4. ISMN ^GENERICON^ [Interacting]
     Indication: ESSENTIAL HYPERTENSION
     Dosage: UNK MG, 1X/DAY
     Route: 048
     Dates: start: 20110321
  5. CONCOR [Interacting]
     Indication: ATRIAL FIBRILLATION
     Dosage: 2.5 MG, 1X/DAY
     Route: 048
  6. BISOPROLOL FUMARATE [Interacting]
     Indication: ATRIAL FIBRILLATION
     Dosage: 5 MG, 1X/DAY
     Route: 048
     Dates: start: 20100628

REACTIONS (2)
  - HAEMORRHAGIC STROKE [None]
  - DRUG INTERACTION [None]
